FAERS Safety Report 11725190 (Version 3)
Quarter: 2018Q4

REPORT INFORMATION
  Report Type: Spontaneous
  Country: US (occurrence: US)
  Receive Date: 20151111
  Receipt Date: 20181123
  Transmission Date: 20190204
  Serious: Yes (Other)
  Sender: FDA-Public Use
  Company Number: US-UCBSA-2014021602

PATIENT
  Sex: Female
  Weight: 77 kg

DRUGS (8)
  1. LISINOPRIL. [Concomitant]
     Active Substance: LISINOPRIL
     Indication: PRODUCT USED FOR UNKNOWN INDICATION
     Dosage: UNK
  2. VIMPAT [Suspect]
     Active Substance: LACOSAMIDE
     Indication: PARTIAL SEIZURES
     Dosage: 200 MG, 2X/DAY (BID)
     Route: 048
  3. VIMPAT [Suspect]
     Active Substance: LACOSAMIDE
     Indication: SEIZURE
     Dosage: 200 MG, ONCE DAILY (QD)
     Route: 048
  4. TRILEPTAL [Concomitant]
     Active Substance: OXCARBAZEPINE
     Indication: PRODUCT USED FOR UNKNOWN INDICATION
     Dosage: 900 MG
     Route: 048
  5. EPITOL [Concomitant]
     Active Substance: CARBAMAZEPINE
     Indication: PRODUCT USED FOR UNKNOWN INDICATION
     Dosage: 200 MG, 3X/DAY (TID)
     Route: 048
  6. VIMPAT [Suspect]
     Active Substance: LACOSAMIDE
     Dosage: 3X/DAY (TID)
     Route: 048
  7. SODIUM [Concomitant]
     Active Substance: SODIUM
     Indication: BLOOD SODIUM DECREASED
     Dosage: UNK
     Route: 048
  8. VIMPAT [Suspect]
     Active Substance: LACOSAMIDE
     Dosage: 100 MG, 2X/DAY (BID)
     Route: 048

REACTIONS (10)
  - Fall [Unknown]
  - Petit mal epilepsy [Unknown]
  - Dizziness [Recovered/Resolved]
  - Generalised tonic-clonic seizure [Recovered/Resolved]
  - Head injury [Unknown]
  - Memory impairment [Not Recovered/Not Resolved]
  - Lethargy [Recovered/Resolved]
  - Blood sodium decreased [Unknown]
  - Intentional product misuse [Unknown]
  - Seizure [Unknown]

NARRATIVE: CASE EVENT DATE: 2018
